FAERS Safety Report 8369658-9 (Version None)
Quarter: 2012Q2

REPORT INFORMATION
  Report Type: 
  Country: None (occurrence: None)
  Receive Date: 20120518
  Receipt Date: 20120503
  Transmission Date: 20120825
  Serious: Yes (Hospitalization, Other)
  Sender: FDA-Public Use
  Company Number: US-MYLANLABS-2009AC000415

PATIENT
  Sex: Female
  Weight: 89.36 kg

DRUGS (40)
  1. CARISOPRODOL [Concomitant]
  2. PROVIGIL [Concomitant]
  3. TENORMIN [Concomitant]
  4. ANTIVERT [Concomitant]
  5. IBUPROFEN [Concomitant]
  6. XANAX [Concomitant]
  7. AMIODARONE HCL [Concomitant]
  8. LASIX [Concomitant]
  9. EFFEXOR [Concomitant]
  10. CITALOPRAM HYDROBROMIDE [Concomitant]
  11. HYDROCODONE BITARTRATE AND ACETAMINOPHEN [Concomitant]
  12. PROZAC [Concomitant]
  13. LEVAQUIN [Concomitant]
  14. CELEBREX [Concomitant]
  15. WARFARIN SODIUM [Concomitant]
  16. METOPROLOL [Concomitant]
  17. HYOSCYAMINE [Concomitant]
  18. METHOCARBAMOL [Concomitant]
  19. FUROSEMIDE [Concomitant]
  20. MAXZIDE [Concomitant]
  21. OXYCODONE HCL AND ACETAMINOPHEN [Concomitant]
  22. CITALOPRAM HYDROBROMIDE [Concomitant]
  23. ABILIFY [Concomitant]
  24. BENTYL [Concomitant]
  25. LORAZEPAM [Concomitant]
  26. DIAZEPAM [Concomitant]
  27. CLONAZEPAM [Concomitant]
  28. ZOLPIDEM [Concomitant]
  29. METOPROLOL SUCCINATE EXTENDED-RELEASE TABLETS USP [Concomitant]
  30. CELEXA [Concomitant]
  31. DIGOXIN [Suspect]
     Route: 048
     Dates: start: 19760101, end: 20091211
  32. TRAZODONE HCL [Concomitant]
  33. PENICILLIN [Concomitant]
  34. COUMADIN [Concomitant]
  35. AMBIEN [Concomitant]
  36. HYDROCODONE [Concomitant]
  37. ALPRAZOLAM [Concomitant]
  38. ATIVAN [Concomitant]
  39. PREMARIN [Concomitant]
  40. OXYCODONE HCL [Concomitant]

REACTIONS (77)
  - DYSPNOEA [None]
  - SNORING [None]
  - ABDOMINAL PAIN [None]
  - LOSS OF EMPLOYMENT [None]
  - PULMONARY HYPERTENSION [None]
  - ADJUSTMENT DISORDER WITH DEPRESSED MOOD [None]
  - EXCORIATION [None]
  - PARAESTHESIA [None]
  - SALPINGO-OOPHORECTOMY [None]
  - ATRIAL FIBRILLATION [None]
  - TREATMENT NONCOMPLIANCE [None]
  - BIPOLAR II DISORDER [None]
  - MAJOR DEPRESSION [None]
  - PNEUMONITIS [None]
  - SUICIDAL IDEATION [None]
  - HIATUS HERNIA [None]
  - OVARIAN CYST [None]
  - CARDIAC DISORDER [None]
  - CHEST PAIN [None]
  - EXOSTOSIS [None]
  - CARDIAC VALVE DISEASE [None]
  - PNEUMONIA [None]
  - BACK PAIN [None]
  - DEPRESSION [None]
  - FALL [None]
  - HEADACHE [None]
  - CARDIAC SEPTAL DEFECT [None]
  - INJURY [None]
  - OBESITY [None]
  - PAIN IN EXTREMITY [None]
  - SUBACUTE ENDOCARDITIS [None]
  - ABDOMINAL DISTENSION [None]
  - AFFECTIVE DISORDER [None]
  - ANXIETY [None]
  - BRONCHITIS [None]
  - FATIGUE [None]
  - PHLEBITIS [None]
  - TACHYCARDIA [None]
  - WEIGHT INCREASED [None]
  - PALPITATIONS [None]
  - MITRAL VALVE INCOMPETENCE [None]
  - VENTRICULAR EXTRASYSTOLES [None]
  - ASTHMA [None]
  - CERVICOBRACHIAL SYNDROME [None]
  - CHEST X-RAY ABNORMAL [None]
  - ECHOCARDIOGRAM ABNORMAL [None]
  - ELECTROCARDIOGRAM ABNORMAL [None]
  - OSTEOARTHRITIS [None]
  - ECONOMIC PROBLEM [None]
  - SYNCOPE [None]
  - ISCHAEMIA [None]
  - HYPERTENSION [None]
  - ANXIETY DISORDER [None]
  - CARDIOVERSION [None]
  - CONTUSION [None]
  - LIGAMENT SPRAIN [None]
  - PHLEBOLITH [None]
  - SINUS BRADYCARDIA [None]
  - STRESS [None]
  - CARDIAC FAILURE CONGESTIVE [None]
  - OEDEMA [None]
  - PULMONARY OEDEMA [None]
  - DIVERTICULUM [None]
  - NEURITIS [None]
  - HYPOTENSION [None]
  - ILL-DEFINED DISORDER [None]
  - PLEURAL EFFUSION [None]
  - LYMPHADENOPATHY MEDIASTINAL [None]
  - MITRAL VALVE STENOSIS [None]
  - LYMPHADENITIS [None]
  - TENDON OPERATION [None]
  - ATRIAL FLUTTER [None]
  - LEFT VENTRICULAR HYPERTROPHY [None]
  - DISTURBANCE IN ATTENTION [None]
  - DIZZINESS [None]
  - LOCAL SWELLING [None]
  - SOCIAL PROBLEM [None]
